FAERS Safety Report 25576806 (Version 1)
Quarter: 2025Q3

REPORT INFORMATION
  Report Type: Spontaneous
  Country: EU (occurrence: EU)
  Receive Date: 20250718
  Receipt Date: 20250718
  Transmission Date: 20251020
  Serious: Yes (Other)
  Sender: RANBAXY
  Company Number: EU-AFSSAPS-CN2025000029

PATIENT
  Age: 81 Year
  Sex: Female

DRUGS (12)
  1. LANSOPRAZOLE [Suspect]
     Active Substance: LANSOPRAZOLE
     Indication: Gastrooesophageal reflux disease
     Dosage: 30 MILLIGRAM, DAILY
     Route: 048
     Dates: end: 20250107
  2. KARDEGIC [Suspect]
     Active Substance: ASPIRIN DL-LYSINE
     Indication: Myocardial ischaemia
     Dosage: 75 MILLIGRAM, DAILY
     Route: 048
  3. RAMIPRIL [Suspect]
     Active Substance: RAMIPRIL
     Indication: Myocardial ischaemia
     Dosage: 5 MILLIGRAM, DAILY
     Route: 048
     Dates: end: 20241017
  4. CRESTOR [Suspect]
     Active Substance: ROSUVASTATIN CALCIUM
     Indication: Myocardial ischaemia
     Dosage: 5 MILLIGRAM, DAILY
     Route: 048
  5. CRESTOR [Suspect]
     Active Substance: ROSUVASTATIN CALCIUM
     Indication: Dyslipidaemia
  6. EZETIMIBE [Concomitant]
     Active Substance: EZETIMIBE
     Indication: Myocardial ischaemia
     Dosage: 10 MILLIGRAM, DAILY
     Route: 048
  7. EZETIMIBE [Concomitant]
     Active Substance: EZETIMIBE
     Indication: Dyslipidaemia
  8. ALDACTONE [Concomitant]
     Active Substance: SPIRONOLACTONE
     Indication: Myocardial ischaemia
     Dosage: 12.5 MILLIGRAM, DAILY
     Route: 048
  9. NITROGLYCERIN [Concomitant]
     Active Substance: NITROGLYCERIN
     Indication: Myocardial ischaemia
     Dosage: 15 MILLIGRAM, DAILY
     Route: 062
  10. ALLOPURINOL [Concomitant]
     Active Substance: ALLOPURINOL
     Indication: Gout
     Dosage: 100 MILLIGRAM, DAILY
     Route: 048
  11. ACETAMINOPHEN [Concomitant]
     Active Substance: ACETAMINOPHEN
     Indication: Product used for unknown indication
     Dosage: 3000 MILLIGRAM, DAILY, 1G 3 TIMES A DAY IF NEEDED
     Route: 048
  12. GAVISCON [Concomitant]
     Active Substance: ALUMINUM HYDROXIDE\MAGNESIUM CARBONATE
     Indication: Gastrooesophageal reflux disease
     Dosage: 3 DOSAGE FORM, DAILY, 1 SACHET 3 TIMES A DAY IF NEEDED
     Route: 048

REACTIONS (1)
  - Colitis microscopic [Recovering/Resolving]

NARRATIVE: CASE EVENT DATE: 20240501
